FAERS Safety Report 24293675 (Version 1)
Quarter: 2024Q3

REPORT INFORMATION
  Report Type: Spontaneous
  Country: US (occurrence: None)
  Receive Date: 20240906
  Receipt Date: 20240906
  Transmission Date: 20241017
  Serious: No
  Sender: DOMPE FARMACEUTICI
  Company Number: US-FARMAPROD-202402-0547

PATIENT
  Age: 37 Year
  Sex: Female

DRUGS (5)
  1. OXERVATE [Suspect]
     Active Substance: CENEGERMIN-BKBJ
     Indication: Neurotrophic keratopathy
     Route: 047
     Dates: start: 20240216
  2. OXERVATE [Suspect]
     Active Substance: CENEGERMIN-BKBJ
  3. SODIUM CHLORIDE [Concomitant]
     Active Substance: SODIUM CHLORIDE
  4. SERUM TEARS [Concomitant]
  5. FLUOROMETHOLONE [Concomitant]
     Active Substance: FLUOROMETHOLONE

REACTIONS (3)
  - Accidental overdose [Unknown]
  - Device use issue [Unknown]
  - Illness [Unknown]

NARRATIVE: CASE EVENT DATE: 20240216
